FAERS Safety Report 7341313-3 (Version None)
Quarter: 2011Q1

REPORT INFORMATION
  Report Type: 
  Country: None (occurrence: None)
  Receive Date: 20110309
  Receipt Date: 20110225
  Transmission Date: 20110831
  Serious: Yes (Other)
  Sender: FDA-Public Use
  Company Number: FR-WATSON-2011-01674

PATIENT
  Age: 74 Year
  Sex: Female
  Weight: 60 kg

DRUGS (2)
  1. LIDOCAINE 1% W/ EPINEPHRINE 1:200,000 [Suspect]
     Indication: LOCAL ANAESTHESIA
     Dosage: TWO INJECTIONS
  2. FLECAINIDE ACETATE [Suspect]
     Indication: CARDIOMYOPATHY
     Dosage: UNK

REACTIONS (8)
  - EYE MOVEMENT DISORDER [None]
  - DISORIENTATION [None]
  - POISONING [None]
  - DRUG INTERACTION [None]
  - LOSS OF CONSCIOUSNESS [None]
  - MYOCLONUS [None]
  - NEUROTOXICITY [None]
  - CONFUSIONAL STATE [None]
